FAERS Safety Report 5913085-8 (Version None)
Quarter: 2008Q4

REPORT INFORMATION
  Report Type: 
  Country: None (occurrence: None)
  Receive Date: 20081008
  Receipt Date: 20081008
  Transmission Date: 20090506
  Serious: Yes (Death, Hospitalization)
  Sender: FDA-Public Use
  Company Number: None

PATIENT
  Age: 79 Year
  Sex: Female
  Weight: 45.3597 kg

DRUGS (2)
  1. AMIODARONE HCL [Suspect]
     Indication: ATRIAL FIBRILLATION
     Dates: start: 20060201, end: 20060726
  2. AMIODARONE HCL [Suspect]
     Indication: MITRAL VALVE INCOMPETENCE
     Dates: start: 20060201, end: 20060726

REACTIONS (11)
  - BACK DISORDER [None]
  - COUGH [None]
  - DRUG TOXICITY [None]
  - DYSGEUSIA [None]
  - FALL [None]
  - FRACTURE [None]
  - GAIT DISTURBANCE [None]
  - HYPOPHAGIA [None]
  - LOSS OF CONSCIOUSNESS [None]
  - MUSCULAR WEAKNESS [None]
  - RENAL FAILURE [None]
